FAERS Safety Report 24444063 (Version 2)
Quarter: 2024Q4

REPORT INFORMATION
  Report Type: Report from Study
  Country: US (occurrence: US)
  Receive Date: 20241016
  Receipt Date: 20241017
  Transmission Date: 20250114
  Serious: No
  Sender: ROCHE
  Company Number: US-ROCHE-2630098

PATIENT
  Sex: Male

DRUGS (9)
  1. RITUXAN [Suspect]
     Active Substance: RITUXIMAB
     Indication: Glomerulonephritis membranoproliferative
     Dosage: ONGOING: YES
     Route: 041
     Dates: start: 2021
  2. RITUXAN [Suspect]
     Active Substance: RITUXIMAB
     Indication: Glomerulonephritis membranous
     Dosage: ONGOING: YES
     Route: 041
     Dates: start: 202305
  3. RITUXAN [Suspect]
     Active Substance: RITUXIMAB
     Indication: Nephritic syndrome
  4. PREDNISONE [Concomitant]
     Active Substance: PREDNISONE
  5. TACROLIMUS [Concomitant]
     Active Substance: TACROLIMUS
  6. LISINOPRIL [Concomitant]
     Active Substance: LISINOPRIL
     Dosage: 20/25 DAILY
  7. ALLOPURINOL [Concomitant]
     Active Substance: ALLOPURINOL
  8. LEVOTHYROXINE [Concomitant]
     Active Substance: LEVOTHYROXINE
  9. PRAVASTATIN [Concomitant]
     Active Substance: PRAVASTATIN

REACTIONS (5)
  - Off label use [Unknown]
  - Nausea [Unknown]
  - Hypertension [Unknown]
  - Urticaria [Unknown]
  - Palpitations [Unknown]

NARRATIVE: CASE EVENT DATE: 20230501
